FAERS Safety Report 8779683 (Version 1)
Quarter: 2012Q4

REPORT INFORMATION
  Report Type: 
  Country: US (occurrence: US)
  Receive Date: 20120912
  Receipt Date: 20120912
  Transmission Date: 20130627
  Serious: No
  Sender: FDA-Public Use
  Company Number: US-TEVA-353155USA

PATIENT
  Age: 72 Year
  Sex: Male
  Weight: 81.72 kg

DRUGS (6)
  1. QNASL [Suspect]
     Indication: RHINORRHOEA
     Dosage: 80 Milligram Daily;
     Route: 055
     Dates: start: 201205
  2. LISINOPRIL [Concomitant]
     Dosage: 20 Milligram Daily;
  3. SYNTHROID [Concomitant]
     Dosage: .075 Milligram Daily;
  4. ARTANE [Concomitant]
     Dosage: 2 Milligram Daily;
  5. BACLOFEN [Concomitant]
     Dosage: 30 Milligram Daily;
  6. SINGULAIR [Concomitant]

REACTIONS (1)
  - Pruritus generalised [Not Recovered/Not Resolved]
